FAERS Safety Report 16388281 (Version 1)
Quarter: 2019Q2

REPORT INFORMATION
  Report Type: Spontaneous
  Country: US (occurrence: US)
  Receive Date: 20190601
  Receipt Date: 20190601
  Transmission Date: 20190711
  Serious: Yes (Hospitalization, Other)
  Sender: FDA-Public Use
  Company Number: None

PATIENT
  Age: 48 Year
  Sex: Female
  Weight: 88 kg

DRUGS (18)
  1. DOCUSATE SODIUM 100 MG PO BID [Concomitant]
  2. METRONIDAZOLE 500MG IV Q8H [Concomitant]
     Dates: start: 20190530, end: 20190601
  3. VANCOMYCIN 1000MG IV Q12H [Concomitant]
     Dates: start: 20190528, end: 20190530
  4. FERROUS SULFATE 325 MG PO ONCE DAILY [Concomitant]
  5. INSULIN LISPRO 4 UNITS SQ TID [Concomitant]
  6. RIVAROXABAN [Suspect]
     Active Substance: RIVAROXABAN
     Indication: DEEP VEIN THROMBOSIS
     Route: 048
     Dates: start: 20190528, end: 20190530
  7. ATORVASTATIN 40 MG PO ONCE DAILY [Concomitant]
  8. CEFTRIAXONE 2G IV ONCE DAILY [Concomitant]
     Dates: start: 20190528, end: 20190531
  9. INSULIN GLARGINE 40 UNITS SQ BID [Concomitant]
     Dates: start: 20190529
  10. CLINDAMYCIN 900 ML IV Q8H [Concomitant]
     Dates: start: 20190527, end: 20190528
  11. GABAPENTIN 900MG PO ONCE DAILY [Concomitant]
     Dates: end: 20190528
  12. HYDROCODONE-APAP 5-325MG PO Q4H, 2 TABS [Concomitant]
     Dates: start: 20190527, end: 20190529
  13. TRAZODONE 50MG PO ONCE DAILY [Concomitant]
  14. MAGNESIUM OXIDE 800MG PO ONCE DAILY [Concomitant]
  15. CYCLOBENZAPRINE 10 MG PO ONCE DAILY [Concomitant]
     Dates: start: 20190527, end: 20190528
  16. ENOXAPARIN 120MG X1 [Concomitant]
     Dates: start: 20190527, end: 20190527
  17. ACETAMINOPHEN 650 MG PO ONCE DAILY [Concomitant]
     Dates: start: 20190529, end: 20190530
  18. DULOXETINE EC 90 MG PO ONCE DAILY [Concomitant]

REACTIONS (1)
  - Liver function test increased [None]

NARRATIVE: CASE EVENT DATE: 20190530
